FAERS Safety Report 17664781 (Version 2)
Quarter: 2021Q1

REPORT INFORMATION
  Report Type: Report from Study
  Country: US (occurrence: US)
  Receive Date: 20200414
  Receipt Date: 20210326
  Transmission Date: 20210419
  Serious: Yes (Disabling)
  Sender: FDA-Public Use
  Company Number: US-SA-2020SA094798

PATIENT
  Age: 57 Year
  Sex: Female

DRUGS (1)
  1. TERIFLUNOMIDE. [Suspect]
     Active Substance: TERIFLUNOMIDE
     Indication: MULTIPLE SCLEROSIS
     Dosage: 14 MG, QD
     Route: 048
     Dates: start: 20200128

REACTIONS (3)
  - Sitting disability [Unknown]
  - Sinus disorder [Unknown]
  - Fall [Unknown]

NARRATIVE: CASE EVENT DATE: 2020
